FAERS Safety Report 20208978 (Version 1)
Quarter: 2021Q4

REPORT INFORMATION
  Report Type: Spontaneous
  Country: CZ (occurrence: CZ)
  Receive Date: 20211220
  Receipt Date: 20211220
  Transmission Date: 20220303
  Serious: Yes (Death, Other)
  Sender: FDA-Public Use
  Company Number: CZ-002147023-NVSC2021CZ289230

PATIENT

DRUGS (1)
  1. RUXOLITINIB [Suspect]
     Active Substance: RUXOLITINIB
     Indication: Graft versus host disease
     Dosage: UNK
     Route: 065

REACTIONS (4)
  - Graft versus host disease [Fatal]
  - Infection [Fatal]
  - Drug ineffective [Unknown]
  - Off label use [Unknown]
